FAERS Safety Report 23757756 (Version 2)
Quarter: 2024Q2

REPORT INFORMATION
  Report Type: Report from Study
  Country: US (occurrence: US)
  Receive Date: 20240418
  Receipt Date: 20240503
  Transmission Date: 20240715
  Serious: Yes (Hospitalization)
  Sender: FDA-Public Use
  Company Number: US-PFIZER INC-PV202400050421

PATIENT
  Age: 61 Year
  Sex: Female
  Weight: 61 kg

DRUGS (1)
  1. CHANTIX [Suspect]
     Active Substance: VARENICLINE TARTRATE
     Indication: Smoking cessation therapy
     Dosage: 0.5 MG, 2X/DAY
     Route: 048
     Dates: end: 20231020

REACTIONS (4)
  - Chest pain [Unknown]
  - Peripheral swelling [Unknown]
  - Condition aggravated [Unknown]
  - Chronic obstructive pulmonary disease [Recovered/Resolved]

NARRATIVE: CASE EVENT DATE: 20231001
